FAERS Safety Report 4292828-6 (Version None)
Quarter: 2004Q1

REPORT INFORMATION
  Report Type: 
  Country: None (occurrence: None)
  Receive Date: 20040212
  Receipt Date: 20030706
  Transmission Date: 20041129
  Serious: Yes (Other)
  Sender: FDA-Public Use
  Company Number: US-GLAXOSMITHKLINE-A0416400A

PATIENT
  Sex: Female

DRUGS (1)
  1. PAXIL [Suspect]
     Route: 048
     Dates: start: 20021001

REACTIONS (4)
  - ADVERSE EVENT [None]
  - DRUG DEPENDENCE [None]
  - FEELING ABNORMAL [None]
  - MALAISE [None]
